FAERS Safety Report 10082376 (Version 1)
Quarter: 2014Q2

REPORT INFORMATION
  Report Type: Report from Study
  Country: CO (occurrence: CO)
  Receive Date: 20140416
  Receipt Date: 20140416
  Transmission Date: 20141212
  Serious: Yes (Death, Hospitalization)
  Sender: FDA-Public Use
  Company Number: CO-BRISTOL-MYERS SQUIBB COMPANY-20624557

PATIENT
  Age: 69 Year
  Sex: 0

DRUGS (1)
  1. ERBITUX [Suspect]
     Indication: COLON CANCER
     Route: 042
     Dates: start: 20131129

REACTIONS (2)
  - Malignant neoplasm progression [Fatal]
  - Cardio-respiratory arrest [Fatal]
